FAERS Safety Report 9555199 (Version 1)
Quarter: 2013Q3

REPORT INFORMATION
  Report Type: Spontaneous
  Country: US (occurrence: None)
  Receive Date: 20130724
  Receipt Date: 20130724
  Transmission Date: 20140515
  Serious: Yes (Other)
  Sender: FDA-Public Use
  Company Number: PHEH2011US013309

PATIENT
  Age: 66 Year
  Sex: Male
  Weight: 78.9 kg

DRUGS (1)
  1. GILENYA [Suspect]
     Route: 048
     Dates: start: 20110817

REACTIONS (2)
  - Chills [None]
  - Throat irritation [None]
